FAERS Safety Report 8597825-8 (Version None)
Quarter: 2012Q3

REPORT INFORMATION
  Report Type: 
  Country: None (occurrence: None)
  Receive Date: 20120803
  Receipt Date: 20120724
  Transmission Date: 20120928
  Serious: Yes (Other)
  Sender: FDA-Public Use
  Company Number: JP-2012-15142

PATIENT
  Age: 70 Year
  Sex: Male
  Weight: 79 kg

DRUGS (6)
  1. UNISIA (CANDESARTAN CILEXETIL AMLODIPINE BESILATE COMBINED DRUG) TABLE [Concomitant]
  2. HANP (CARPERITIDE) INJECTION [Concomitant]
  3. CARVEDILOL [Concomitant]
  4. ALLOPURINOL [Concomitant]
  5. SAMSCA [Suspect]
     Indication: FLUID RETENTION
     Dosage: 7.5 MG MILLIGRAM(S), QAM, ORAL
     Route: 048
     Dates: start: 20120419, end: 20120420
  6. LASIX [Concomitant]

REACTIONS (4)
  - MONOPARESIS [None]
  - PNEUMONIA [None]
  - CARDIAC FAILURE [None]
  - CEREBROVASCULAR DISORDER [None]
